FAERS Safety Report 20738920 (Version 1)
Quarter: 2022Q2

REPORT INFORMATION
  Report Type: Report from Study
  Country: CA (occurrence: CA)
  Receive Date: 20220422
  Receipt Date: 20220422
  Transmission Date: 20220721
  Serious: Yes (Other)
  Sender: FDA-Public Use
  Company Number: CA-NOVARTISPH-NVSC2022CA092451

PATIENT
  Age: 42 Year
  Sex: Female

DRUGS (3)
  1. ALBUTEROL [Suspect]
     Active Substance: ALBUTEROL
     Indication: Asthma
     Dosage: UNK UNK, PRN (ONCE/WEEK)
     Route: 065
  2. SPIRIVA [Concomitant]
     Active Substance: TIOTROPIUM BROMIDE MONOHYDRATE
     Indication: Product used for unknown indication
     Dosage: UNK UNK, QD
     Route: 065
  3. ZENHALE [Concomitant]
     Active Substance: FORMOTEROL FUMARATE\MOMETASONE FUROATE
     Indication: Product used for unknown indication
     Dosage: 2 DOSAGE FORM, BID (INITIALLY AT TWO PUFFS)
     Route: 055
     Dates: start: 202109

REACTIONS (12)
  - Blood immunoglobulin E increased [Unknown]
  - Nasal inflammation [Unknown]
  - Rhinitis [Unknown]
  - Candida infection [Unknown]
  - Sputum discoloured [Unknown]
  - Productive cough [Unknown]
  - Rhinorrhoea [Recovering/Resolving]
  - Nasal congestion [Recovering/Resolving]
  - Nasal pruritus [Recovering/Resolving]
  - Seasonal allergy [Unknown]
  - Weight decreased [Unknown]
  - Skin test positive [Unknown]

NARRATIVE: CASE EVENT DATE: 20220204
